FAERS Safety Report 4827556-9 (Version None)
Quarter: 2005Q4

REPORT INFORMATION
  Report Type: 
  Country: None (occurrence: None)
  Receive Date: 20051114
  Receipt Date: 20051014
  Transmission Date: 20060501
  Serious: Yes (Death)
  Sender: FDA-Public Use
  Company Number: 2005UW15509

PATIENT

DRUGS (3)
  1. SEROQUEL [Suspect]
  2. METHADONE [Interacting]
  3. MAO INHIBITORS [Concomitant]

REACTIONS (2)
  - DRUG INTERACTION [None]
  - ROAD TRAFFIC ACCIDENT [None]
